FAERS Safety Report 10573855 (Version 1)
Quarter: 2014Q4

REPORT INFORMATION
  Report Type: Spontaneous
  Country: DE (occurrence: DE)
  Receive Date: 20141110
  Receipt Date: 20141110
  Transmission Date: 20150529
  Serious: Yes (Other)
  Sender: FDA-Public Use
  Company Number: DE-AUROBINDO-AUR-APL-2014-11664

PATIENT
  Age: 49 Year
  Sex: Male
  Weight: 96 kg

DRUGS (11)
  1. PEGINTERFERON ALFA-2A [Suspect]
     Active Substance: PEGINTERFERON ALFA-2A
     Indication: HEPATITIS C RNA
     Dosage: 180 ?G, EVERY WEEK
     Route: 065
  2. TELAPREVIR [Suspect]
     Active Substance: TELAPREVIR
     Indication: HEPATITIS C RNA
     Dosage: 750 MG, 3 TIMES A DAY
     Route: 065
  3. MYCOPHENOLATE MOFETIL. [Concomitant]
     Active Substance: MYCOPHENOLATE MOFETIL
     Indication: IMMUNOSUPPRESSION
     Dosage: 500 MG, TWO TIMES A DAY
     Route: 065
  4. CYCLOSPORIN A [Concomitant]
     Active Substance: CYCLOSPORINE
     Dosage: 100 MG, TWO TIMES A DAY
     Route: 065
  5. CYCLOSPORIN A [Concomitant]
     Active Substance: CYCLOSPORINE
     Dosage: 25 MG, ONCE A DAY
     Route: 065
  6. PEGINTERFERON ALFA-2A [Suspect]
     Active Substance: PEGINTERFERON ALFA-2A
     Dosage: 90 ?G, EVERY WEEK
     Route: 065
  7. CYCLOSPORIN A [Concomitant]
     Active Substance: CYCLOSPORINE
     Indication: IMMUNOSUPPRESSION
     Dosage: 75 MG, TWO TIMES A DAY
     Route: 065
  8. RIBAVIRIN. [Suspect]
     Active Substance: RIBAVIRIN
     Indication: HEPATITIS C RNA
     Dosage: 1000 MG, ONCE A DAY
     Route: 065
  9. RIBAVIRIN. [Suspect]
     Active Substance: RIBAVIRIN
     Dosage: 800 MG, ONCE A DAY
     Route: 065
  10. AMLODIPINE [Concomitant]
     Active Substance: AMLODIPINE BESYLATE
     Indication: PRODUCT USED FOR UNKNOWN INDICATION
     Dosage: 5 MG, ONCE A DAY
     Route: 065
  11. TACROLIMUS. [Concomitant]
     Active Substance: TACROLIMUS
     Indication: IMMUNOSUPPRESSION
     Dosage: 8 MG, TWO TIMES A DAY
     Route: 065

REACTIONS (5)
  - Erythema nodosum [Recovered/Resolved]
  - Gastrooesophageal reflux disease [Unknown]
  - Anaemia [Recovered/Resolved]
  - Hypertension [Unknown]
  - Leukopenia [Recovering/Resolving]
